FAERS Safety Report 4864748-7 (Version None)
Quarter: 2005Q4

REPORT INFORMATION
  Report Type: 
  Country: None (occurrence: None)
  Receive Date: 20051222
  Receipt Date: 20051219
  Transmission Date: 20060501
  Serious: Yes (Hospitalization)
  Sender: FDA-Public Use
  Company Number: JP-MERCK-0512USA03168

PATIENT
  Age: 68 Year
  Sex: Male

DRUGS (4)
  1. ELSPAR [Suspect]
     Indication: NATURAL KILLER-CELL LEUKAEMIA
     Route: 065
     Dates: start: 20010101
  2. DOXORUBICIN [Concomitant]
     Indication: NATURAL KILLER-CELL LEUKAEMIA
     Route: 065
     Dates: start: 20010101
  3. VINCRISTINE SULFATE [Concomitant]
     Indication: NATURAL KILLER-CELL LEUKAEMIA
     Route: 065
     Dates: start: 20010101
  4. PREDNISOLONE [Concomitant]
     Indication: NATURAL KILLER-CELL LEUKAEMIA
     Route: 065
     Dates: start: 20010101

REACTIONS (3)
  - HAEMOPTYSIS [None]
  - LUNG ABSCESS [None]
  - SEPSIS SYNDROME [None]
